FAERS Safety Report 4540180-0 (Version None)
Quarter: 2004Q4

REPORT INFORMATION
  Report Type: 
  Country: None (occurrence: None)
  Receive Date: 20041228
  Receipt Date: 20041221
  Transmission Date: 20050328
  Serious: Yes (Disabling)
  Sender: FDA-Public Use
  Company Number: US-MERCK-0412USA02638

PATIENT
  Age: 48 Year
  Sex: Male

DRUGS (1)
  1. VIOXX [Suspect]
     Indication: ROTATOR CUFF REPAIR
     Route: 048
     Dates: start: 20010101

REACTIONS (2)
  - CHEST PAIN [None]
  - HEADACHE [None]
